FAERS Safety Report 4694235-0 (Version None)
Quarter: 2005Q2

REPORT INFORMATION
  Report Type: 
  Country: None (occurrence: None)
  Receive Date: 20050617
  Receipt Date: 20050617
  Transmission Date: 20051028
  Serious: Yes (Death)
  Sender: FDA-Public Use
  Company Number: None

PATIENT
  Age: 36 Year
  Sex: Female
  Weight: 84 kg

DRUGS (17)
  1. PHENYTOIN     100MG/2ML    ABBOTT [Suspect]
     Indication: PETIT MAL EPILEPSY
     Dosage: 800    ONCE    SUBCONJUNC
     Route: 057
     Dates: start: 20050526, end: 20050526
  2. PHENYTOIN       250MG/5ML      ABBOTT [Suspect]
  3. NORCO [Concomitant]
  4. NORVASC [Concomitant]
  5. COREG [Concomitant]
  6. CLONIDINE [Concomitant]
  7. LASIX [Concomitant]
  8. LOPID [Concomitant]
  9. INSULIN [Concomitant]
  10. LISINOPRIL [Concomitant]
  11. METHYLDOPA [Concomitant]
  12. MORPHINE [Concomitant]
  13. PROTONIX [Concomitant]
  14. PIROXICAM [Concomitant]
  15. POTASSIUM CHLORIDE [Concomitant]
  16. PROMETHAZINE [Concomitant]
  17. ZOLPIDEM [Concomitant]

REACTIONS (3)
  - BRADYCARDIA [None]
  - CARDIO-RESPIRATORY ARREST [None]
  - HYPOTENSION [None]
